FAERS Safety Report 9400994 (Version 1)
Quarter: 2013Q3

REPORT INFORMATION
  Report Type: Spontaneous
  Country: US (occurrence: US)
  Receive Date: 20130715
  Receipt Date: 20130715
  Transmission Date: 20140515
  Serious: Yes (Hospitalization)
  Sender: FDA-Public Use
  Company Number: US-BRISTOL-MYERS SQUIBB COMPANY-19079243

PATIENT
  Age: 48 Year
  Sex: Male
  Weight: 79.36 kg

DRUGS (1)
  1. ABILIFY [Suspect]
     Indication: DEPRESSION
     Dosage: TOTAL OF 2-3 WEEKS

REACTIONS (1)
  - Paranoia [Unknown]
